FAERS Safety Report 4429883-6 (Version None)
Quarter: 2004Q3

REPORT INFORMATION
  Report Type: 
  Country: None (occurrence: None)
  Receive Date: 20040817
  Receipt Date: 20040810
  Transmission Date: 20050211
  Serious: Yes (Other)
  Sender: FDA-Public Use
  Company Number: US-JNJFOC-20040802873

PATIENT
  Age: 37 Year
  Sex: Female

DRUGS (2)
  1. TYLENOL [Suspect]
     Indication: BACK PAIN
     Dosage: 1000 MG, 1 IN 1 TOTAL, ORAL
     Route: 048
     Dates: start: 20040806, end: 20040806
  2. SOMA [Concomitant]

REACTIONS (7)
  - BLOOD PRESSURE DIASTOLIC DECREASED [None]
  - BLOOD PRESSURE SYSTOLIC INCREASED [None]
  - DIARRHOEA [None]
  - PRURITUS GENERALISED [None]
  - REFUSAL OF TREATMENT BY PATIENT [None]
  - SYNCOPE [None]
  - TREATMENT NONCOMPLIANCE [None]
